FAERS Safety Report 4707638-2 (Version None)
Quarter: 2005Q3

REPORT INFORMATION
  Report Type: 
  Country: None (occurrence: None)
  Receive Date: 20050705
  Receipt Date: 20050616
  Transmission Date: 20060218
  Serious: Yes (Other)
  Sender: FDA-Public Use
  Company Number: 2005-00917

PATIENT
  Age: 73 Year
  Sex: Male

DRUGS (7)
  1. VELCADE [Suspect]
     Indication: MULTIPLE MYELOMA
     Dosage: 2.60 MG 2/WEEK INTRAVENOUS
     Route: 042
     Dates: start: 20050412
  2. FLECAINE(FLECAINIDE ACETATATE) [Concomitant]
  3. NOCTRAN 10(ACEPROMAZINE,CLORAZEPATE DIPOTASSIUM,ACEPROMETAZINE) [Concomitant]
  4. PREVISCAN (FLUINDIONE) [Concomitant]
  5. TENORMIN [Concomitant]
  6. NICARDIPINE HCL [Concomitant]
  7. PAROXETINE HYDROCHLORIDE [Concomitant]

REACTIONS (7)
  - CHILLS [None]
  - ERYTHROBLAST COUNT INCREASED [None]
  - HAEMOGLOBIN DECREASED [None]
  - PLATELET COUNT DECREASED [None]
  - SERUM FERRITIN INCREASED [None]
  - SOMNOLENCE [None]
  - WHITE BLOOD CELL COUNT DECREASED [None]
